FAERS Safety Report 7526394-6 (Version None)
Quarter: 2011Q2

REPORT INFORMATION
  Report Type: 
  Country: None (occurrence: None)
  Receive Date: 20110606
  Receipt Date: 20110601
  Transmission Date: 20111010
  Serious: No
  Sender: FDA-Public Use
  Company Number: US-PFIZER INC-2011105508

PATIENT
  Age: 18 Year
  Sex: Female

DRUGS (3)
  1. PRISTIQ [Suspect]
     Indication: DEPRESSION
     Dosage: 50 MG, 1X/DAY AT AM
     Route: 048
     Dates: start: 20110126
  2. SEROQUEL [Concomitant]
     Dosage: UNK
     Dates: start: 20110113, end: 20110525
  3. OMEPRAZOLE [Concomitant]
     Indication: GASTROOESOPHAGEAL REFLUX DISEASE
     Dosage: UNK
     Dates: start: 20101220, end: 20110502

REACTIONS (1)
  - DRUG SCREEN FALSE POSITIVE [None]
